FAERS Safety Report 6171173-8 (Version None)
Quarter: 2009Q2

REPORT INFORMATION
  Report Type: 
  Country: None (occurrence: None)
  Receive Date: 20090427
  Receipt Date: 20090415
  Transmission Date: 20091009
  Serious: Yes (Other)
  Sender: FDA-Public Use
  Company Number: TUK2009A00070

PATIENT
  Age: 76 Year
  Sex: Female

DRUGS (9)
  1. ACTOS [Suspect]
     Dosage: 15 MG (15 MG) ORAL
     Route: 048
     Dates: start: 20090308, end: 20090318
  2. AMLODIPINE [Concomitant]
  3. ATORVASTATIN CALCIUM [Concomitant]
  4. CLENIL MODULITE (BECLOMETASONE DIPROPIONATE) [Concomitant]
  5. FUROSEMIDE [Concomitant]
  6. GLICLAZIDE (GLICLAZIDE) [Concomitant]
  7. LEVOTHYROXINE SODIUM [Concomitant]
  8. METFORMIN HCL [Concomitant]
  9. VENTOLIN [Concomitant]

REACTIONS (2)
  - ARTHRALGIA [None]
  - MOBILITY DECREASED [None]
